FAERS Safety Report 6014020-7 (Version None)
Quarter: 2008Q4

REPORT INFORMATION
  Report Type: 
  Country: None (occurrence: None)
  Receive Date: 20081219
  Receipt Date: 20080506
  Transmission Date: 20090506
  Serious: No
  Sender: FDA-Public Use
  Company Number: A0671197A

PATIENT
  Age: 74 Year
  Sex: Male

DRUGS (8)
  1. AVODART [Suspect]
     Indication: BENIGN PROSTATIC HYPERPLASIA
     Dosage: .5MG THREE TIMES PER WEEK
     Route: 048
     Dates: start: 20061003
  2. PRAVASTATIN [Concomitant]
  3. ALLOPURINOL [Concomitant]
  4. DIOVAN HCT [Concomitant]
  5. TOPROL-XL [Concomitant]
  6. IMDUR [Concomitant]
  7. PLAVIX [Concomitant]
  8. NITROGLYCERIN [Concomitant]

REACTIONS (2)
  - GLOSSODYNIA [None]
  - PRODUCT QUALITY ISSUE [None]
